FAERS Safety Report 10627484 (Version 3)
Quarter: 2014Q4

REPORT INFORMATION
  Report Type: Report from Study
  Country: AU (occurrence: AU)
  Receive Date: 20141205
  Receipt Date: 20141210
  Transmission Date: 20150529
  Serious: Yes (Other)
  Sender: FDA-Public Use
  Company Number: AU-ROCHE-1491665

PATIENT
  Age: 56 Year
  Sex: Female

DRUGS (1)
  1. ACTEMRA [Suspect]
     Active Substance: TOCILIZUMAB
     Indication: RHEUMATOID ARTHRITIS
     Route: 042
     Dates: start: 20141017, end: 20141205

REACTIONS (6)
  - Feeling abnormal [Recovering/Resolving]
  - Mouth ulceration [Not Recovered/Not Resolved]
  - Gastric ulcer [Recovering/Resolving]
  - Enteritis infectious [Recovering/Resolving]
  - Confusional state [Recovering/Resolving]
  - Colitis [Unknown]

NARRATIVE: CASE EVENT DATE: 20141017
